FAERS Safety Report 5993306-6 (Version None)
Quarter: 2008Q4

REPORT INFORMATION
  Report Type: 
  Country: None (occurrence: None)
  Receive Date: 20081209
  Receipt Date: 20071114
  Transmission Date: 20090506
  Serious: No
  Sender: FDA-Public Use
  Company Number: 07H-163-0313468-00

PATIENT
  Sex: Female

DRUGS (1)
  1. DEMEROL [Suspect]
     Indication: PAIN
     Dosage: 25 MG, ONCE, INTRAVENOUS
     Route: 042
     Dates: start: 20071105, end: 20071105

REACTIONS (2)
  - INJECTION SITE REACTION [None]
  - URTICARIA [None]
